FAERS Safety Report 12111230 (Version 1)
Quarter: 2016Q1

REPORT INFORMATION
  Report Type: Spontaneous
  Country: US (occurrence: US)
  Receive Date: 20160224
  Receipt Date: 20160224
  Transmission Date: 20160526
  Serious: No
  Sender: FDA-Public Use
  Company Number: US-JAZZ-2015-US-005056

PATIENT
  Age: 36 Year
  Sex: Female

DRUGS (4)
  1. PRIALT [Suspect]
     Active Substance: ZICONOTIDE ACETATE
     Indication: POST LAMINECTOMY SYNDROME
     Dosage: UNK ?G, QH
     Route: 037
     Dates: end: 20150318
  2. PRIALT [Suspect]
     Active Substance: ZICONOTIDE ACETATE
     Indication: SPINAL PAIN
     Dosage: 0.181 ?G, QH
     Route: 037
     Dates: start: 20150318, end: 20150325
  3. PRIALT [Suspect]
     Active Substance: ZICONOTIDE ACETATE
     Dosage: 0.05 ?G, QH
     Route: 037
     Dates: start: 20150410
  4. PRIALT [Suspect]
     Active Substance: ZICONOTIDE ACETATE
     Dosage: 0.353 ?G, QH
     Route: 037
     Dates: start: 20150325, end: 20150410

REACTIONS (6)
  - Disorientation [Unknown]
  - Loss of consciousness [Unknown]
  - Dizziness [Recovered/Resolved]
  - Amnesia [Unknown]
  - Hallucination, auditory [Unknown]
  - Hallucination, visual [Unknown]

NARRATIVE: CASE EVENT DATE: 201503
